FAERS Safety Report 16373493 (Version 1)
Quarter: 2019Q2

REPORT INFORMATION
  Report Type: Spontaneous
  Country: US (occurrence: US)
  Receive Date: 20190530
  Receipt Date: 20190530
  Transmission Date: 20190711
  Serious: No
  Sender: FDA-Public Use
  Company Number: US-SA-2019SA144698

PATIENT
  Sex: Female

DRUGS (16)
  1. NITROSTAT [Concomitant]
     Active Substance: NITROGLYCERIN
     Dosage: 1 DF( 1 TAB), PRN
     Route: 048
     Dates: start: 20180112
  2. DICLOFENAC [Concomitant]
     Active Substance: DICLOFENAC
     Dosage: 50 MG, TID
     Route: 048
     Dates: start: 20180903
  3. METOPROLOL. [Concomitant]
     Active Substance: METOPROLOL
     Dosage: 1 DF, BID
     Route: 048
     Dates: start: 20180112
  4. CYCLOBENZAPRINE. [Concomitant]
     Active Substance: CYCLOBENZAPRINE
     Dosage: 1 DF(1 TAB), BID
     Route: 048
     Dates: start: 20180112
  5. DICYCLOMINE [DICYCLOVERINE] [Concomitant]
     Dosage: 1 DF(1 TAB), BID
     Route: 048
     Dates: start: 20180112
  6. LOSARTAN. [Concomitant]
     Active Substance: LOSARTAN
     Dosage: 75 MG, QD
     Route: 048
     Dates: start: 20190520
  7. AMITRIPTYLINE [Concomitant]
     Active Substance: AMITRIPTYLINE
     Dosage: 1 DF(1 TAB), QD
     Route: 048
     Dates: start: 20180112
  8. LEVOTHYROXINE. [Concomitant]
     Active Substance: LEVOTHYROXINE
     Dosage: 1 DF, QD
     Route: 048
     Dates: start: 20180112
  9. SERTRALINE [Concomitant]
     Active Substance: SERTRALINE HYDROCHLORIDE
     Dosage: 100 MG, QD
     Route: 048
     Dates: start: 20180903
  10. LIPITOR [Concomitant]
     Active Substance: ATORVASTATIN CALCIUM
     Dosage: 1 DF( 1 TAB), QD
     Route: 048
     Dates: start: 20180112
  11. LORAZEPAM. [Concomitant]
     Active Substance: LORAZEPAM
     Dosage: 1 DF, QD
     Route: 048
     Dates: start: 20180112
  12. COENZYME Q10 [Concomitant]
     Active Substance: UBIDECARENONE
     Dosage: 1 DF(1 TAB), QD
     Route: 048
     Dates: start: 20180112
  13. FABRAZYME [Suspect]
     Active Substance: AGALSIDASE BETA
     Indication: FABRY^S DISEASE
     Dosage: 92 MG QOW
     Route: 041
     Dates: start: 20180112
  14. DOCUSATE [Concomitant]
     Active Substance: DOCUSATE
     Dosage: 100  MG, PRN
     Route: 048
     Dates: start: 20180228
  15. PANTOPRAZOLE [Concomitant]
     Active Substance: PANTOPRAZOLE
     Dosage: 40 MG, QD
     Route: 048
     Dates: start: 20180903
  16. OMEGA 3 [FISH OIL] [Concomitant]
     Active Substance: FISH OIL
     Dosage: 1 DF( 1 CAP), QD
     Route: 048
     Dates: start: 20180112

REACTIONS (1)
  - Blood pressure increased [Unknown]
